FAERS Safety Report 6768215-5 (Version None)
Quarter: 2010Q2

REPORT INFORMATION
  Report Type: 
  Country: None (occurrence: None)
  Receive Date: 20100614
  Receipt Date: 20100602
  Transmission Date: 20101027
  Serious: Yes (Hospitalization)
  Sender: FDA-Public Use
  Company Number: AU-MERCK-1006USA01618

PATIENT
  Age: 8 Month
  Sex: Male

DRUGS (4)
  1. HYDROCORTISONE [Suspect]
     Indication: BLOOD CORTICOTROPHIN DECREASED
     Route: 048
  2. HYDROCORTISONE [Suspect]
     Indication: GASTROENTERITIS ROTAVIRUS
     Route: 042
  3. DESMOPRESSIN [Concomitant]
     Route: 048
  4. LEVOTHYROXINE SODIUM [Concomitant]
     Route: 048

REACTIONS (6)
  - ANAEMIA [None]
  - GENERAL PHYSICAL HEALTH DETERIORATION [None]
  - KLEBSIELLA BACTERAEMIA [None]
  - KLEBSIELLA SEPSIS [None]
  - NEUTROPHILIA [None]
  - THROMBOCYTOPENIA [None]
